FAERS Safety Report 9264315 (Version 2)
Quarter: 2013Q2

REPORT INFORMATION
  Report Type: Spontaneous
  Country: FR (occurrence: FR)
  Receive Date: 20130430
  Receipt Date: 20130506
  Transmission Date: 20140414
  Serious: Yes (Death)
  Sender: FDA-Public Use
  Company Number: FR-ASTRAZENECA-2013SE28992

PATIENT
  Age: 60 Year
  Sex: Male

DRUGS (2)
  1. XEROQUEL [Suspect]
     Route: 048
  2. RISPERDAL [Suspect]
     Route: 065

REACTIONS (2)
  - Death [Fatal]
  - Myocardial infarction [Fatal]
